FAERS Safety Report 18653777 (Version 1)
Quarter: 2020Q4

REPORT INFORMATION
  Report Type: Spontaneous
  Country: US (occurrence: US)
  Receive Date: 20201222
  Receipt Date: 20201222
  Transmission Date: 20210114
  Serious: Yes (Other)
  Sender: FDA-Public Use
  Company Number: None

PATIENT
  Age: 14 Year
  Sex: Male
  Weight: 72 kg

DRUGS (16)
  1. VISINE/SOOTH XP [Concomitant]
  2. BACTRIM [Suspect]
     Active Substance: SULFAMETHOXAZOLE\TRIMETHOPRIM
     Indication: GASTROINTESTINAL BACTERIAL INFECTION
     Dosage: ?          QUANTITY:2 CAPSULE(S);?
     Route: 048
  3. NORTIPTYLINE [Concomitant]
     Active Substance: NORTRIPTYLINE
  4. IBUPROFEN. [Concomitant]
     Active Substance: IBUPROFEN
  5. ACETAMINOPHEN. [Concomitant]
     Active Substance: ACETAMINOPHEN
  6. TRUVADA [Concomitant]
     Active Substance: EMTRICITABINE\TENOFOVIR DISOPROXIL FUMARATE
  7. ELDERBERRY [Concomitant]
     Active Substance: HERBALS
  8. TERBINAFINE. [Concomitant]
     Active Substance: TERBINAFINE
  9. CLINDAMYCIN. [Concomitant]
     Active Substance: CLINDAMYCIN
  10. ECHINACEA [Concomitant]
     Active Substance: ECHINACEA, UNSPECIFIED
  11. VITAMIN D [Concomitant]
     Active Substance: VITAMIN D NOS
  12. VITAMIN C [Concomitant]
     Active Substance: ASCORBIC ACID
  13. AMOXICILLIN. [Concomitant]
     Active Substance: AMOXICILLIN
  14. ADDERALL XR [Concomitant]
     Active Substance: AMPHETAMINE ASPARTATE\AMPHETAMINE SULFATE\DEXTROAMPHETAMINE SACCHARATE\DEXTROAMPHETAMINE SULFATE
  15. MAXALT [Concomitant]
     Active Substance: RIZATRIPTAN BENZOATE
  16. PREPARATION H MEDICATED WIPES AND CREAM [Concomitant]

REACTIONS (4)
  - Pain [None]
  - Hypersensitivity [None]
  - Pyrexia [None]
  - Crying [None]

NARRATIVE: CASE EVENT DATE: 20080715
